FAERS Safety Report 9889242 (Version 1)
Quarter: 2014Q1

REPORT INFORMATION
  Report Type: Report from Study
  Country: US (occurrence: US)
  Receive Date: 20140211
  Receipt Date: 20140211
  Transmission Date: 20141002
  Serious: Yes (Other)
  Sender: FDA-Public Use
  Company Number: US-ALEXION PHARMACEUTICALS INC.-A200800531

PATIENT
  Sex: Female

DRUGS (1)
  1. SOLIRIS [Suspect]
     Indication: PAROXYSMAL NOCTURNAL HAEMOGLOBINURIA
     Dosage: UNK

REACTIONS (7)
  - Aspiration bone marrow [Recovering/Resolving]
  - Platelet transfusion [Unknown]
  - Transfusion [Unknown]
  - Arthralgia [Unknown]
  - Drug dose omission [Unknown]
  - Fatigue [Unknown]
  - Pain in extremity [Unknown]
